FAERS Safety Report 15142324 (Version 1)
Quarter: 2018Q3

REPORT INFORMATION
  Report Type: Spontaneous
  Country: US (occurrence: US)
  Receive Date: 20180713
  Receipt Date: 20180713
  Transmission Date: 20181010
  Serious: Yes (Other)
  Sender: FDA-Public Use
  Company Number: US-PFIZER INC-2018280529

PATIENT
  Sex: Male

DRUGS (2)
  1. ADVIL [Suspect]
     Active Substance: IBUPROFEN
     Dosage: UNK
  2. XARELTO [Suspect]
     Active Substance: RIVAROXABAN
     Dosage: UNK (FOR THREE MONTHS POST ABLATION )
     Route: 048

REACTIONS (4)
  - Gastrointestinal haemorrhage [Unknown]
  - Oesophageal rupture [Unknown]
  - Nausea [Unknown]
  - Haematemesis [Unknown]
